FAERS Safety Report 9149376 (Version 2)
Quarter: 2013Q1

REPORT INFORMATION
  Report Type: Spontaneous
  Country: US (occurrence: US)
  Receive Date: 20130308
  Receipt Date: 20130329
  Transmission Date: 20140127
  Serious: No
  Sender: FDA-Public Use
  Company Number: US-PFIZER INC-2013079022

PATIENT
  Age: 70 Year
  Sex: Male

DRUGS (1)
  1. NORVASC [Suspect]
     Dosage: UNK

REACTIONS (5)
  - Heart rate decreased [Unknown]
  - Chest pain [Unknown]
  - Fatigue [Unknown]
  - Local swelling [Unknown]
  - Heart rate irregular [Unknown]
